FAERS Safety Report 6570607-4 (Version None)
Quarter: 2010Q1

REPORT INFORMATION
  Report Type: 
  Country: None (occurrence: None)
  Receive Date: 20100204
  Receipt Date: 20100126
  Transmission Date: 20100710
  Serious: Yes (Hospitalization)
  Sender: FDA-Public Use
  Company Number: US-ASTRAZENECA-2010SE03661

PATIENT
  Age: 36 Year
  Sex: Male

DRUGS (6)
  1. SEROQUEL [Suspect]
     Dosage: 200 MG 8AM, 400 MG 8 PM
     Route: 048
  2. SEROQUEL [Suspect]
     Route: 048
  3. DETROL LA [Concomitant]
  4. KEPPRA [Concomitant]
  5. PREVACID [Concomitant]
  6. MILK OF MAGNESIA TAB [Concomitant]

REACTIONS (3)
  - HAEMATURIA [None]
  - PLATELET FUNCTION TEST ABNORMAL [None]
  - SCROTAL HAEMATOMA [None]
